FAERS Safety Report 18334018 (Version 1)
Quarter: 2020Q3

REPORT INFORMATION
  Report Type: Spontaneous
  Country: US (occurrence: US)
  Receive Date: 20200930
  Receipt Date: 20200930
  Transmission Date: 20201103
  Serious: Yes (Death, Hospitalization)
  Sender: FDA-Public Use
  Company Number: None

PATIENT
  Age: 85 Year
  Sex: Female
  Weight: 41.85 kg

DRUGS (1)
  1. CELECOXIB, SUBSTITUTED FOR CELEBREX 200 MG CAPSULE [Suspect]
     Active Substance: CELECOXIB
     Indication: SWELLING
     Dosage: ?          QUANTITY:1 CAPSULE(S);?
     Route: 048
     Dates: start: 20200629, end: 20200709

REACTIONS (4)
  - Haematemesis [None]
  - Loss of consciousness [None]
  - Haematochezia [None]
  - Ulcer haemorrhage [None]

NARRATIVE: CASE EVENT DATE: 20200710
